FAERS Safety Report 8649982 (Version 5)
Quarter: 2012Q4

REPORT INFORMATION
  Report Type: Spontaneous
  Country: None (occurrence: None)
  Receive Date: 20120622
  Receipt Date: 20120914
  Transmission Date: 20130627
  Serious: Yes (Other)
  Sender: FDA-Public Use
  Company Number: AUR-APL-2012-02692

PATIENT
  Age: 68 Year
  Sex: Female

DRUGS (9)
  1. FLUCONAZOLE [Suspect]
     Indication: THRUSH
     Dosage: 50 MG, ORAL
     Route: 048
     Dates: start: 20120315, end: 20120322
  2. OMEPRAZOLE [Suspect]
     Indication: GASTRIC DISORDER
     Dosage: 20 MG, ORAL
     Route: 048
     Dates: start: 20120315
  3. ACYCLOVIR [Suspect]
     Indication: COLD SORES
     Dosage: 400 MG, ORAL
     Route: 048
     Dates: start: 20120315, end: 20120322
  4. VELCADE [Suspect]
     Indication: CHEMOTHERAPY
     Dosage: 0.1429 Dosage forms (1 Dosage forms, 1 in 1 wk), Intravenous
     Dates: start: 20120315
  5. OXYCODONE HYDROCHLORIDE [Concomitant]
  6. MOVICOL [Concomitant]
  7. DEXAMETHASONE SODIUM PHOSPHATE [Concomitant]
  8. ALLOPURINOL [Concomitant]
  9. CALCEOS (LEKOVIT CA) [Concomitant]

REACTIONS (2)
  - Alanine aminotransferase increased [None]
  - Blood alkaline phosphatase increased [None]
